FAERS Safety Report 7591726-X (Version None)
Quarter: 2011Q3

REPORT INFORMATION
  Report Type: 
  Country: None (occurrence: None)
  Receive Date: 20110706
  Receipt Date: 20110621
  Transmission Date: 20111222
  Serious: Yes (Other)
  Sender: FDA-Public Use
  Company Number: US-BAYER-2011-038267

PATIENT
  Age: 22 Year
  Sex: Female
  Weight: 102 kg

DRUGS (11)
  1. ASCORBIC ACID [Concomitant]
  2. YASMIN [Suspect]
     Indication: CONTRACEPTION
     Dosage: UNK
     Dates: start: 20060101, end: 20080101
  3. YASMIN [Suspect]
     Indication: PREMENSTRUAL SYNDROME
  4. YASMIN [Suspect]
     Indication: ACNE
  5. YAZ [Suspect]
     Indication: PREMENSTRUAL SYNDROME
  6. ACETAMINOPHEN [Concomitant]
  7. YAZ [Suspect]
     Indication: ACNE
  8. ANTIMIGRAINE PREPARATIONS [Concomitant]
     Dosage: UNK
     Dates: start: 20010101
  9. YAZ [Suspect]
     Indication: CONTRACEPTION
     Dosage: UNK
     Dates: start: 20060101, end: 20080101
  10. IBUPROFEN [Concomitant]
  11. IBUPROFEN (ADVIL) [Concomitant]

REACTIONS (6)
  - GALLBLADDER DISORDER [None]
  - UNEVALUABLE EVENT [None]
  - IRRITABLE BOWEL SYNDROME [None]
  - CHOLELITHIASIS [None]
  - CHOLECYSTECTOMY [None]
  - ABDOMINAL DISCOMFORT [None]
